FAERS Safety Report 16941772 (Version 1)
Quarter: 2019Q4

REPORT INFORMATION
  Report Type: Spontaneous
  Country: US (occurrence: US)
  Receive Date: 20191020
  Receipt Date: 20191020
  Transmission Date: 20200122
  Serious: Yes (Life-Threatening, Hospitalization)
  Sender: FDA-Public Use
  Company Number: None

PATIENT
  Age: 61 Year
  Sex: Male
  Weight: 130 kg

DRUGS (1)
  1. XARELTO [Suspect]
     Active Substance: RIVAROXABAN
     Route: 048

REACTIONS (3)
  - Head injury [None]
  - Road traffic accident [None]
  - Haematoma [None]

NARRATIVE: CASE EVENT DATE: 20191017
